FAERS Safety Report 9008126 (Version 1)
Quarter: 2012Q4

REPORT INFORMATION
  Report Type: Spontaneous
  Country: RO (occurrence: None)
  Receive Date: 20121227
  Receipt Date: 20121227
  Transmission Date: 20130627
  Serious: Yes (Death)
  Sender: FDA-Public Use
  Company Number: FK201204016

PATIENT
  Age: 80 Year
  Sex: Male
  Weight: 70 kg

DRUGS (4)
  1. PROPOFOL [Suspect]
     Dosage: Intravenous (not otherwise specified)
     Route: 042
     Dates: start: 20121120, end: 20121120
  2. CEFUROXIME (CEFUROXIME) [Suspect]
  3. KETAMINE (KETAMINE) (KETAMINE) [Suspect]
     Dates: start: 20121220
  4. MIDAZOLAM (MIDAZOLAM) [Suspect]
     Dates: start: 20121120

REACTIONS (8)
  - Chills [None]
  - Feeling cold [None]
  - Hypotension [None]
  - Psychomotor hyperactivity [None]
  - Pyrexia [None]
  - Multi-organ disorder [None]
  - Continuous haemodiafiltration [None]
  - Sepsis [None]
